FAERS Safety Report 4389350-5 (Version None)
Quarter: 2004Q2

REPORT INFORMATION
  Report Type: 
  Country: None (occurrence: None)
  Receive Date: 20040628
  Receipt Date: 20040616
  Transmission Date: 20050107
  Serious: Yes (Death, Life-Threatening)
  Sender: FDA-Public Use
  Company Number: EMADSS2001000010

PATIENT
  Age: 65 Year
  Sex: Male
  Weight: 64 kg

DRUGS (5)
  1. DURAGESIC [Suspect]
     Indication: PAIN
     Dosage: 25 UG/HR, 1 IN 72 HOUR, TRANSDERMAL
     Route: 062
     Dates: start: 20000717, end: 20001011
  2. BACLOFEN [Concomitant]
  3. TEMAZEPAM [Concomitant]
  4. HALOPERIDOL [Concomitant]
  5. LISINOPRIL [Concomitant]

REACTIONS (11)
  - DEPRESSION [None]
  - GLASGOW COMA SCALE ABNORMAL [None]
  - HYPERCALCAEMIA [None]
  - HYPOALBUMINAEMIA [None]
  - LOWER RESPIRATORY TRACT INFECTION [None]
  - MIOSIS [None]
  - OXYGEN SATURATION DECREASED [None]
  - PYREXIA [None]
  - RENAL IMPAIRMENT [None]
  - RESPIRATORY RATE DECREASED [None]
  - SOMNOLENCE [None]
